FAERS Safety Report 9409904 (Version 1)
Quarter: 2013Q3

REPORT INFORMATION
  Report Type: Spontaneous
  Country: US (occurrence: US)
  Receive Date: 20130719
  Receipt Date: 20130719
  Transmission Date: 20140515
  Serious: No
  Sender: FDA-Public Use
  Company Number: US-FOUGERA-2012FO001326

PATIENT
  Age: 56 Year
  Sex: Female
  Weight: 88.53 kg

DRUGS (4)
  1. CLOTRIMAZOLE AND BETAMETHASONE DIPROPIONATE [Suspect]
     Indication: SKIN DISORDER
     Route: 061
     Dates: start: 20120907, end: 20120907
  2. CLOTRIMAZOLE AND BETAMETHASONE DIPROPIONATE [Suspect]
     Indication: DERMATITIS
  3. PROGESTERONE [Concomitant]
     Indication: UTERINE ENLARGEMENT
     Route: 048
     Dates: start: 20120712
  4. FLEXATIN [Concomitant]
     Indication: UTERINE ENLARGEMENT
     Route: 048
     Dates: start: 20120727

REACTIONS (6)
  - Application site pruritus [Not Recovered/Not Resolved]
  - Application site swelling [Not Recovered/Not Resolved]
  - Application site erythema [Not Recovered/Not Resolved]
  - Skin exfoliation [Not Recovered/Not Resolved]
  - Condition aggravated [Not Recovered/Not Resolved]
  - Off label use [Recovered/Resolved]
